FAERS Safety Report 4694406-3 (Version None)
Quarter: 2005Q2

REPORT INFORMATION
  Report Type: 
  Country: None (occurrence: None)
  Receive Date: 20050614
  Receipt Date: 20050315
  Transmission Date: 20051028
  Serious: No
  Sender: FDA-Public Use
  Company Number: USA050393298

PATIENT
  Age: 19 Year
  Sex: Male
  Weight: 64 kg

DRUGS (1)
  1. CIALIS [Suspect]
     Dosage: 10 MG
     Dates: start: 20050315

REACTIONS (3)
  - ERECTILE DYSFUNCTION [None]
  - ERECTION INCREASED [None]
  - LIBIDO INCREASED [None]
